FAERS Safety Report 5398808-1 (Version None)
Quarter: 2007Q3

REPORT INFORMATION
  Report Type: 
  Country: None (occurrence: None)
  Receive Date: 20070725
  Receipt Date: 20070725
  Transmission Date: 20080115
  Serious: Yes (Hospitalization)
  Sender: FDA-Public Use
  Company Number: None

PATIENT
  Sex: Female
  Weight: 68.0396 kg

DRUGS (1)
  1. METFORMIN HCL [Suspect]
     Dosage: 500MG BID PO
     Route: 048

REACTIONS (2)
  - FLANK PAIN [None]
  - NAUSEA [None]
